FAERS Safety Report 6073242-X (Version None)
Quarter: 2009Q1

REPORT INFORMATION
  Report Type: 
  Country: None (occurrence: None)
  Receive Date: 20090211
  Receipt Date: 20090121
  Transmission Date: 20090719
  Serious: No
  Sender: FDA-Public Use
  Company Number: A0760011A

PATIENT
  Age: 72 Year
  Sex: Female

DRUGS (3)
  1. ALTABAX [Suspect]
     Dosage: 1APP TWICE PER DAY
     Route: 061
     Dates: start: 20081202
  2. CEPHALEXIN [Concomitant]
  3. OINTMENT [Concomitant]
     Route: 061

REACTIONS (2)
  - APPLICATION SITE IRRITATION [None]
  - APPLICATION SITE PAIN [None]
